FAERS Safety Report 18320394 (Version 1)
Quarter: 2020Q3

REPORT INFORMATION
  Report Type: Spontaneous
  Country: US (occurrence: US)
  Receive Date: 20200928
  Receipt Date: 20200928
  Transmission Date: 20201103
  Serious: No
  Sender: FDA-Public Use
  Company Number: US-TEVA-2020-US-1832444

PATIENT
  Age: 30 Year
  Sex: Female

DRUGS (2)
  1. SUNOSI [Interacting]
     Active Substance: SOLRIAMFETOL
     Indication: NARCOLEPSY
     Route: 065
  2. CLARAVIS [Suspect]
     Active Substance: ISOTRETINOIN
     Indication: ACNE CYSTIC
     Route: 065

REACTIONS (2)
  - Drug interaction [Unknown]
  - Hair colour changes [Unknown]
